FAERS Safety Report 13266470 (Version 2)
Quarter: 2017Q1

REPORT INFORMATION
  Report Type: Spontaneous
  Country: BR (occurrence: BR)
  Receive Date: 20170223
  Receipt Date: 20170303
  Transmission Date: 20170428
  Serious: Yes (Hospitalization, Other)
  Sender: FDA-Public Use
  Company Number: BR-009507513-1702BRA004370

PATIENT
  Age: 23 Year
  Sex: Female
  Weight: 62 kg

DRUGS (8)
  1. CIPROFLOXACIN. [Concomitant]
     Active Substance: CIPROFLOXACIN
     Indication: FISTULA
  2. INVANZ [Suspect]
     Active Substance: ERTAPENEM SODIUM
     Indication: POST PROCEDURAL DISCHARGE
     Dosage: 1 G, DAILY
     Route: 042
     Dates: start: 20170127, end: 20170211
  3. TEICOPLANIN [Concomitant]
     Active Substance: TEICOPLANIN
     Indication: FISTULA
     Dosage: 400 MG, DAILY
     Route: 042
     Dates: start: 20170131, end: 20170211
  4. CIPROFLOXACIN. [Concomitant]
     Active Substance: CIPROFLOXACIN
     Indication: POST PROCEDURAL DISCHARGE
     Dosage: 500 MG ONE TABLET IN THE MORNING AND ONE TABLET AT NIGHT
     Route: 048
     Dates: start: 201609
  5. INVANZ [Suspect]
     Active Substance: ERTAPENEM SODIUM
     Indication: POST PROCEDURAL FISTULA
  6. CLINDAMYCIN. [Concomitant]
     Active Substance: CLINDAMYCIN
     Indication: FISTULA
  7. TEICOPLANIN [Concomitant]
     Active Substance: TEICOPLANIN
     Indication: POST PROCEDURAL DISCHARGE
     Dosage: 400 MG, EVERY 12 HOUS
     Route: 042
     Dates: start: 20170127
  8. CLINDAMYCIN. [Concomitant]
     Active Substance: CLINDAMYCIN
     Indication: POST PROCEDURAL DISCHARGE
     Dosage: 300 MG ONE TABLET EVERY 6 HOURS
     Route: 048
     Dates: start: 201609

REACTIONS (16)
  - Thrombocytopenia [Recovered/Resolved]
  - Dysuria [Not Recovered/Not Resolved]
  - Headache [Recovered/Resolved]
  - Polymerase chain reaction positive [Recovered/Resolved]
  - Rash [Recovering/Resolving]
  - Neck pain [Not Recovered/Not Resolved]
  - Lymphadenitis [Not Recovered/Not Resolved]
  - Rash [Recovering/Resolving]
  - Urine odour abnormal [Not Recovered/Not Resolved]
  - Headache [Not Recovered/Not Resolved]
  - Body temperature abnormal [Not Recovered/Not Resolved]
  - Post procedural fistula [Unknown]
  - Dry mouth [Not Recovered/Not Resolved]
  - Nausea [Not Recovered/Not Resolved]
  - Stomatitis [Unknown]
  - Rash [Recovering/Resolving]

NARRATIVE: CASE EVENT DATE: 20170127
